FAERS Safety Report 5287406-6 (Version None)
Quarter: 2007Q1

REPORT INFORMATION
  Report Type: 
  Country: None (occurrence: None)
  Receive Date: 20070116
  Receipt Date: 20060929
  Transmission Date: 20070707
  Serious: No
  Sender: FDA-Public Use
  Company Number: 2006SP003473

PATIENT
  Age: 87 Year
  Sex: Female
  Weight: 76.2043 kg

DRUGS (6)
  1. LUNESTA [Suspect]
     Indication: INSOMNIA
     Dosage: 1 MG; HS; ORAL
     Route: 048
  2. PIOGLITAZONE [Concomitant]
  3. HYDROCHLORIDE [Concomitant]
  4. LISINOPRIL [Concomitant]
  5. MOTRIN [Concomitant]
  6. LEXAPRO [Concomitant]

REACTIONS (1)
  - SOMNOLENCE [None]
